FAERS Safety Report 6146333-2 (Version None)
Quarter: 2009Q2

REPORT INFORMATION
  Report Type: 
  Country: None (occurrence: None)
  Receive Date: 20090407
  Receipt Date: 20090331
  Transmission Date: 20091009
  Serious: Yes (Hospitalization)
  Sender: FDA-Public Use
  Company Number: US-BIOGENIDEC-2009BI000777

PATIENT
  Age: 52 Year
  Sex: Female

DRUGS (7)
  1. TYSABRI [Suspect]
     Indication: MULTIPLE SCLEROSIS
     Route: 042
     Dates: start: 20070612
  2. LYRICA [Concomitant]
     Indication: NEURALGIA
     Route: 048
  3. ALLEGRA D 24 HOUR [Concomitant]
     Indication: MULTIPLE ALLERGIES
     Route: 048
  4. AMBIEN [Concomitant]
     Indication: INSOMNIA
     Route: 048
  5. MOTRIN [Concomitant]
     Indication: PAIN
     Route: 048
  6. SINGULAIR [Concomitant]
     Indication: MULTIPLE ALLERGIES
     Route: 048
  7. FEMHRT [Concomitant]
     Indication: SUPPLEMENTATION THERAPY

REACTIONS (1)
  - CERVICAL DYSPLASIA [None]
